FAERS Safety Report 9240426 (Version 2)
Quarter: 2013Q2

REPORT INFORMATION
  Report Type: Spontaneous
  Country: US (occurrence: None)
  Receive Date: 20130417
  Receipt Date: 20130417
  Transmission Date: 20140414
  Serious: Yes (Other)
  Sender: FDA-Public Use
  Company Number: OTH-PAT-2013003

PATIENT
  Age: 44 Year
  Sex: Male

DRUGS (1)
  1. CYSTADANE [Suspect]
     Indication: HOMOCYSTINURIA
     Dates: start: 20130301

REACTIONS (2)
  - Abdominal pain upper [None]
  - Aversion [None]
